FAERS Safety Report 14581109 (Version 2)
Quarter: 2018Q2

REPORT INFORMATION
  Report Type: Spontaneous
  Country: US (occurrence: US)
  Receive Date: 20180228
  Receipt Date: 20180524
  Transmission Date: 20180711
  Serious: Yes (Hospitalization)
  Sender: FDA-Public Use
  Company Number: US-PFIZER INC-2018062126

PATIENT
  Age: 74 Year
  Sex: Female

DRUGS (2)
  1. IBRANCE [Suspect]
     Active Substance: PALBOCICLIB
     Indication: NEOPLASM MALIGNANT
     Dosage: 125 MG, CYCLIC (1 A DAY FOR 21 DAYS)
     Dates: start: 201710, end: 20180201
  2. LETROZOLE. [Concomitant]
     Active Substance: LETROZOLE
     Dosage: UNK

REACTIONS (9)
  - Cough [Recovered/Resolved]
  - Influenza [Recovered/Resolved]
  - Pollakiuria [Recovered/Resolved]
  - White blood cell count decreased [Recovered/Resolved]
  - Chronic obstructive pulmonary disease [Recovered/Resolved]
  - Diarrhoea [Recovered/Resolved]
  - Scar [Unknown]
  - Pyrexia [Unknown]
  - Vein collapse [Recovered/Resolved]

NARRATIVE: CASE EVENT DATE: 201802
